FAERS Safety Report 22220977 (Version 1)
Quarter: 2023Q2

REPORT INFORMATION
  Report Type: Spontaneous
  Country: US (occurrence: US)
  Receive Date: 20230418
  Receipt Date: 20230418
  Transmission Date: 20230721
  Serious: No
  Sender: FDA-Public Use
  Company Number: US-AMGEN-USASP2023066501

PATIENT
  Sex: Female

DRUGS (1)
  1. REPATHA [Suspect]
     Active Substance: EVOLOCUMAB
     Indication: Product used for unknown indication
     Dosage: 420MG/3.5ML EVERY 28 DAYS
     Route: 065
     Dates: start: 2023

REACTIONS (2)
  - Injection site rash [Recovering/Resolving]
  - Hunger [Unknown]

NARRATIVE: CASE EVENT DATE: 20230101
